FAERS Safety Report 6917556-7 (Version None)
Quarter: 2010Q3

REPORT INFORMATION
  Report Type: 
  Country: None (occurrence: None)
  Receive Date: 20100805
  Receipt Date: 20100721
  Transmission Date: 20110219
  Serious: Yes (Hospitalization)
  Sender: FDA-Public Use
  Company Number: DSA_26546_2005

PATIENT
  Age: 53 Year
  Sex: Male

DRUGS (4)
  1. ENALAPRIL MALEATE [Suspect]
     Indication: HYPERTENSION
     Dosage: (5 MG QD ORAL)
     Route: 048
     Dates: start: 20050315, end: 20050503
  2. ASPIRIN [Concomitant]
  3. MARZULENE [Concomitant]
  4. HERBESSER [Concomitant]

REACTIONS (8)
  - ANGINA UNSTABLE [None]
  - ANGIOEDEMA [None]
  - DYSPHONIA [None]
  - DYSPNOEA [None]
  - HEPATIC FUNCTION ABNORMAL [None]
  - LARYNGEAL OEDEMA [None]
  - NASAL CONGESTION [None]
  - WHITE BLOOD CELL COUNT INCREASED [None]
